FAERS Safety Report 6263648-8 (Version None)
Quarter: 2009Q3

REPORT INFORMATION
  Report Type: 
  Country: None (occurrence: None)
  Receive Date: 20090710
  Receipt Date: 20090702
  Transmission Date: 20100115
  Serious: Yes (Hospitalization)
  Sender: FDA-Public Use
  Company Number: US-ROCHE-641681

PATIENT
  Age: 46 Year
  Sex: Male

DRUGS (6)
  1. BONIVA [Suspect]
     Indication: OSTEOPENIA
     Route: 048
     Dates: start: 20090628
  2. ZOLOFT [Concomitant]
  3. MINOCYCLINE HCL [Concomitant]
  4. VITAMIN B COMPLEX CAP [Concomitant]
  5. PROTONIX [Concomitant]
  6. LIALDA [Concomitant]

REACTIONS (4)
  - BACK PAIN [None]
  - CHEST PAIN [None]
  - DYSPNOEA [None]
  - MUSCLE SPASMS [None]
